FAERS Safety Report 5287931-8 (Version None)
Quarter: 2007Q1

REPORT INFORMATION
  Report Type: 
  Country: None (occurrence: None)
  Receive Date: 20070118
  Receipt Date: 20061017
  Transmission Date: 20070707
  Serious: Yes (Other)
  Sender: FDA-Public Use
  Company Number: HQWYE274818OCT06

PATIENT
  Sex: Female

DRUGS (1)
  1. ADVIL PM [Suspect]
     Dosage: 2 CAPSULE 1X PER 1 DAY, ORAL
     Route: 048

REACTIONS (1)
  - DRUG INEFFECTIVE [None]
